FAERS Safety Report 7234498-0 (Version None)
Quarter: 2011Q1

REPORT INFORMATION
  Report Type: 
  Country: None (occurrence: None)
  Receive Date: 20110119
  Receipt Date: 20110113
  Transmission Date: 20110831
  Serious: Yes (Hospitalization)
  Sender: FDA-Public Use
  Company Number: FR-MERCK-1101FRA00066

PATIENT
  Age: 81 Year
  Sex: Male

DRUGS (1)
  1. STROMECTOL [Suspect]
     Indication: ACARODERMATITIS
     Route: 048
     Dates: start: 20101001

REACTIONS (3)
  - CEREBELLAR SYNDROME [None]
  - CONFUSIONAL STATE [None]
  - NUCLEAR MAGNETIC RESONANCE IMAGING ABNORMAL [None]
